FAERS Safety Report 10053584 (Version 1)
Quarter: 2014Q2

REPORT INFORMATION
  Report Type: Report from Study
  Country: FR (occurrence: FR)
  Receive Date: 20140402
  Receipt Date: 20140402
  Transmission Date: 20141212
  Serious: Yes (Hospitalization)
  Sender: FDA-Public Use
  Company Number: FR-ASTRAZENECA-2014SE21062

PATIENT
  Age: 21765 Day
  Sex: Female

DRUGS (2)
  1. FULVESTRANT [Suspect]
     Indication: LUNG NEOPLASM MALIGNANT
     Dosage: 500 MG (2X250 MG) EVERY MONTH WITH AN ADDITIONAL 500 MG DOSE TWO WEEKS AFTER THE INITIAL DOSE
     Route: 030
  2. ERLOTINIB [Suspect]
     Indication: LUNG NEOPLASM MALIGNANT
     Route: 048

REACTIONS (2)
  - Pulmonary embolism [Recovered/Resolved]
  - Thrombosis [Recovered/Resolved]
